FAERS Safety Report 23694273 (Version 1)
Quarter: 2024Q2

REPORT INFORMATION
  Report Type: Spontaneous
  Country: CN (occurrence: CN)
  Receive Date: 20240401
  Receipt Date: 20240401
  Transmission Date: 20240716
  Serious: Yes (Hospitalization, Other)
  Sender: FDA-Public Use
  Company Number: CN-TAKEDA-2024TUS028939

PATIENT
  Age: 59 Year
  Sex: Male
  Weight: 53 kg

DRUGS (4)
  1. ADCETRIS [Suspect]
     Active Substance: BRENTUXIMAB VEDOTIN
     Indication: Lymphoma
     Dosage: 70 MILLIGRAM, QD
     Route: 041
     Dates: start: 20240105, end: 20240108
  2. VINCRISTINE SULFATE [Suspect]
     Active Substance: VINCRISTINE SULFATE
     Indication: Lymphoma
     Dosage: 2 MILLIGRAM, QD
     Route: 041
     Dates: start: 20240106, end: 20240109
  3. EPIRUBICIN HYDROCHLORIDE [Suspect]
     Active Substance: EPIRUBICIN HYDROCHLORIDE
     Indication: Lymphoma
     Dosage: 50 MILLIGRAM, QD
     Route: 041
     Dates: start: 20240106, end: 20240109
  4. DACARBAZINE [Suspect]
     Active Substance: DACARBAZINE
     Indication: Lymphoma
     Dosage: 600 MILLIGRAM, QD
     Route: 041
     Dates: start: 20240106, end: 20240109

REACTIONS (1)
  - Myelosuppression [Recovering/Resolving]

NARRATIVE: CASE EVENT DATE: 20240114
